FAERS Safety Report 15676304 (Version 1)
Quarter: 2018Q4

REPORT INFORMATION
  Report Type: Spontaneous
  Country: ZA (occurrence: ZA)
  Receive Date: 20181130
  Receipt Date: 20181130
  Transmission Date: 20190205
  Serious: Yes (Other)
  Sender: FDA-Public Use
  Company Number: ZA-PFIZER INC-2018487376

PATIENT
  Age: 54 Year
  Sex: Female

DRUGS (16)
  1. LYRICA [Suspect]
     Active Substance: PREGABALIN
     Dosage: 75 MG, UNK
  2. ELTROXIN [Suspect]
     Active Substance: LEVOTHYROXINE
     Dosage: 100 MCG,UNK
  3. TRAMAZAC [TRAMADOL] [Suspect]
     Active Substance: TRAMADOL
     Dosage: 50 MG, UNK
  4. BIGSENS [Suspect]
     Active Substance: METFORMIN HYDROCHLORIDE
     Dosage: 1000 MG, UNK
  5. ASPEN WARFARIN [Suspect]
     Active Substance: WARFARIN
     Dosage: 5 MG, UNK
  6. ADCO-RETIC [Suspect]
     Active Substance: AMILORIDE HYDROCHLORIDE\HYDROCHLOROTHIAZIDE
     Dosage: 5/50 MG, UNK
  7. DOPAQUEL [Suspect]
     Active Substance: QUETIAPINE
     Dosage: 300 MG, UNK
  8. JANUVIA [Suspect]
     Active Substance: SITAGLIPTIN PHOSPHATE
     Dosage: 50 MG, UNK
  9. FLEXOCAM [Suspect]
     Active Substance: MELOXICAM
     Dosage: 15 MG, UNK
  10. OMEZ [OMEPRAZOLE] [Suspect]
     Active Substance: OMEPRAZOLE
     Dosage: 40 MG, UNK
  11. ASPEN TRAZODONE [Suspect]
     Active Substance: TRAZODONE HYDROCHLORIDE
     Dosage: 100 MG, UNK
  12. ALLOPURINOL SANDOZ [Suspect]
     Active Substance: ALLOPURINOL
     Dosage: 300 MG, UNK
  13. METFORMIN [Suspect]
     Active Substance: METFORMIN HYDROCHLORIDE
     Dosage: 850 MG, UNK
  14. STORWIN [Suspect]
     Active Substance: ROSUVASTATIN CALCIUM
     Dosage: 10 MG, UNK
  15. LEVEMIR [Suspect]
     Active Substance: INSULIN DETEMIR
     Dosage: 100 IU, UNK
  16. CYMGEN [Suspect]
     Active Substance: DULOXETINE HYDROCHLORIDE
     Dosage: 60 MG, UNK

REACTIONS (3)
  - Cerebrovascular accident [Unknown]
  - Wound infection [Recovering/Resolving]
  - Memory impairment [Unknown]
